FAERS Safety Report 13145023 (Version 5)
Quarter: 2017Q3

REPORT INFORMATION
  Report Type: Spontaneous
  Country: GB (occurrence: GB)
  Receive Date: 20170124
  Receipt Date: 20170918
  Transmission Date: 20171127
  Serious: Yes (Other)
  Sender: FDA-Public Use
  Company Number: GB-MYLANLABS-2017M1003526

PATIENT
  Age: 24 Year
  Sex: Male

DRUGS (1)
  1. CLOZARIL [Suspect]
     Active Substance: CLOZAPINE
     Indication: SCHIZOPHRENIA
     Dosage: UNK
     Route: 048
     Dates: start: 20111128

REACTIONS (5)
  - Gastrooesophageal reflux disease [Not Recovered/Not Resolved]
  - Influenza like illness [Recovering/Resolving]
  - Anaemia [Not Recovered/Not Resolved]
  - Cough [Recovering/Resolving]
  - Barrett^s oesophagus [Not Recovered/Not Resolved]

NARRATIVE: CASE EVENT DATE: 20160621
